FAERS Safety Report 6245201-5 (Version None)
Quarter: 2009Q2

REPORT INFORMATION
  Report Type: 
  Country: None (occurrence: None)
  Receive Date: 20090625
  Receipt Date: 20090622
  Transmission Date: 20091009
  Serious: Yes (Hospitalization)
  Sender: FDA-Public Use
  Company Number: PHHY2009DE05504

PATIENT
  Sex: Female

DRUGS (2)
  1. VOLTAREN [Suspect]
     Indication: SURGERY
     Dosage: 1 DF, BID
     Route: 048
     Dates: start: 20090210, end: 20090210
  2. RANITIDINE HCL [Concomitant]
     Indication: GASTRIC DISORDER
     Dosage: UNK
     Dates: start: 20090210

REACTIONS (3)
  - ABDOMINAL PAIN LOWER [None]
  - DIARRHOEA [None]
  - GASTROENTERITIS [None]
